FAERS Safety Report 8909908 (Version 1)
Quarter: 2012Q4

REPORT INFORMATION
  Report Type: 
  Country: FR (occurrence: FR)
  Receive Date: 20121115
  Receipt Date: 20121115
  Transmission Date: 20130627
  Serious: Yes (Other)
  Sender: FDA-Public Use
  Company Number: FR-PFIZER INC-2012283696

PATIENT

DRUGS (1)
  1. FARMORUBICINE [Suspect]
     Dosage: UNK
     Dates: start: 201209, end: 201209

REACTIONS (4)
  - Pain [Recovered/Resolved]
  - Syncope [Recovered/Resolved]
  - Hyperhidrosis [Recovered/Resolved]
  - Hypertension [Recovered/Resolved]
